FAERS Safety Report 25874094 (Version 1)
Quarter: 2025Q4

REPORT INFORMATION
  Report Type: Spontaneous
  Country: US (occurrence: US)
  Receive Date: 20251002
  Receipt Date: 20251002
  Transmission Date: 20260117
  Serious: Yes (Death, Other)
  Sender: PFIZER
  Company Number: US-PFIZER INC-202300259952

PATIENT
  Age: 71 Year
  Sex: Female

DRUGS (2)
  1. TIKOSYN [Suspect]
     Active Substance: DOFETILIDE
     Dosage: TAKES 2 A DAY, ONE IN THE MORNING AND ONE AT NIGHT
  2. TIKOSYN [Suspect]
     Active Substance: DOFETILIDE
     Dosage: UNK, 2X/DAY
     Dates: start: 20230816

REACTIONS (2)
  - Death [Fatal]
  - Product dispensing error [Unknown]
